FAERS Safety Report 9629338 (Version 1)
Quarter: 2013Q4

REPORT INFORMATION
  Report Type: Spontaneous
  Country: US (occurrence: US)
  Receive Date: 20131017
  Receipt Date: 20131017
  Transmission Date: 20140711
  Serious: No
  Sender: FDA-Public Use
  Company Number: US-TEVA-438672USA

PATIENT
  Sex: Female

DRUGS (1)
  1. PROAIR HFA [Suspect]

REACTIONS (3)
  - Palpitations [Unknown]
  - Product measured potency issue [Unknown]
  - Product distribution issue [Unknown]
